FAERS Safety Report 4823795-1 (Version None)
Quarter: 2005Q4

REPORT INFORMATION
  Report Type: 
  Country: None (occurrence: None)
  Receive Date: 20051109
  Receipt Date: 20051025
  Transmission Date: 20060501
  Serious: Yes (Other)
  Sender: FDA-Public Use
  Company Number: SI-MERCK-0510HUN00022

PATIENT
  Sex: Female

DRUGS (17)
  1. INVANZ [Suspect]
     Indication: CHOLECYSTITIS ACUTE
     Route: 042
     Dates: start: 20051007, end: 20051010
  2. METILDIGOXIN [Concomitant]
     Indication: ATRIAL FIBRILLATION
     Route: 048
     Dates: start: 20051005
  3. CARBAMAZEPINE [Concomitant]
     Indication: EPILEPSY
     Route: 048
  4. CEFOTAXIME SODIUM [Concomitant]
     Indication: URINARY TRACT INFECTION
     Route: 042
     Dates: start: 20050930, end: 20051005
  5. CEFUROXIME AXETIL [Concomitant]
     Route: 048
     Dates: start: 20051005
  6. SOTALOL HYDROCHLORIDE [Concomitant]
     Route: 065
  7. AMLODIPINE BESYLATE [Concomitant]
     Route: 065
  8. PERINDOPRIL [Concomitant]
     Route: 065
  9. OMEPRAZOLE [Concomitant]
     Route: 065
  10. ENOXAPARIN SODIUM [Concomitant]
     Route: 065
  11. NITROGLYCERIN [Concomitant]
     Route: 061
  12. IRON (UNSPECIFIED) [Concomitant]
     Route: 048
  13. REBOXETINE MESYLATE [Concomitant]
     Route: 048
  14. FOLIC ACID [Concomitant]
     Route: 048
  15. LACTITOL [Concomitant]
     Route: 065
  16. BISACODYL [Concomitant]
     Route: 065
  17. DIAZEPAM [Concomitant]
     Route: 042
     Dates: start: 20051010, end: 20051011

REACTIONS (1)
  - EPILEPSY [None]
